FAERS Safety Report 14452258 (Version 1)
Quarter: 2018Q1

REPORT INFORMATION
  Report Type: Spontaneous
  Country: US (occurrence: US)
  Receive Date: 20180126
  Receipt Date: 20180126
  Transmission Date: 20180509
  Serious: Yes (Death)
  Sender: FDA-Public Use
  Company Number: None

PATIENT
  Age: 9 Month
  Sex: Male

DRUGS (6)
  1. SPIRONOLACT [Concomitant]
     Active Substance: SPIRONOLACTONE
  2. VIGABATRIN 500MG PWD [Suspect]
     Active Substance: VIGABATRIN
     Indication: INFANTILE SPASMS
     Route: 048
     Dates: start: 20171018, end: 201801
  3. TOPAMAX [Concomitant]
     Active Substance: TOPIRAMATE
  4. MULTIVITAMIN [Concomitant]
     Active Substance: VITAMINS
  5. AUGMENTIN [Concomitant]
     Active Substance: AMOXICILLIN\CLAVULANATE POTASSIUM
  6. PREDNISOLONE. [Concomitant]
     Active Substance: PREDNISOLONE

REACTIONS (1)
  - Death [None]
